FAERS Safety Report 13937510 (Version 4)
Quarter: 2019Q3

REPORT INFORMATION
  Report Type: Report from Study
  Country: KR (occurrence: KR)
  Receive Date: 20170905
  Receipt Date: 20190820
  Transmission Date: 20191004
  Serious: Yes (Hospitalization, Other)
  Sender: FDA-Public Use
  Company Number: KR-TAKEDA-2017TUS018409

PATIENT
  Age: 52 Year
  Sex: Male
  Weight: 99.5 kg

DRUGS (22)
  1. VORTIOXETINE. [Suspect]
     Active Substance: VORTIOXETINE
     Dosage: 20 MILLIGRAM, QD
     Route: 048
     Dates: start: 20170207
  2. FESOTERODINE [Concomitant]
     Active Substance: FESOTERODINE
     Indication: BENIGN PROSTATIC HYPERPLASIA
     Dosage: 4 MILLIGRAM
     Route: 048
     Dates: start: 20170207
  3. VORTIOXETINE. [Suspect]
     Active Substance: VORTIOXETINE
     Indication: MAJOR DEPRESSION
     Dosage: 5 MILLIGRAM, QD
     Route: 048
     Dates: start: 20161212, end: 20170108
  4. ALPRAZOLAM. [Concomitant]
     Active Substance: ALPRAZOLAM
     Indication: MAJOR DEPRESSION
     Dosage: 0.125 MILLIGRAM
     Route: 048
     Dates: start: 20161017, end: 20161211
  5. CANDESARTAN. [Concomitant]
     Active Substance: CANDESARTAN
     Indication: CONGESTIVE CARDIOMYOPATHY
     Dosage: 16 MILLIGRAM
     Route: 048
     Dates: start: 20151218, end: 20170108
  6. FUROSEMIDE. [Concomitant]
     Active Substance: FUROSEMIDE
     Indication: CONGESTIVE CARDIOMYOPATHY
     Dosage: 20 MILLIGRAM
     Route: 048
     Dates: start: 20161013, end: 20170314
  7. FUROSEMIDE. [Concomitant]
     Active Substance: FUROSEMIDE
     Dosage: 10 MILLIGRAM
     Route: 048
     Dates: start: 20170315
  8. NEBIVOLOL. [Concomitant]
     Active Substance: NEBIVOLOL
     Indication: CONGESTIVE CARDIOMYOPATHY
     Dosage: 2.5 MILLIGRAM
     Route: 048
     Dates: start: 20160530
  9. SPIRONOLACTONE. [Concomitant]
     Active Substance: SPIRONOLACTONE
     Dosage: 12.5 MILLIGRAM
     Route: 048
     Dates: start: 20170109, end: 20170205
  10. CANDESARTAN. [Concomitant]
     Active Substance: CANDESARTAN
     Indication: CONGESTIVE CARDIOMYOPATHY
     Dosage: 8 MILLIGRAM
     Route: 048
     Dates: start: 20170109, end: 20170205
  11. SERTRALINE [Concomitant]
     Active Substance: SERTRALINE HYDROCHLORIDE
     Indication: MAJOR DEPRESSION
     Dosage: 100 MILLIGRAM
     Route: 048
     Dates: start: 20160919, end: 20170614
  12. TADALAFIL. [Concomitant]
     Active Substance: TADALAFIL
     Indication: BENIGN PROSTATIC HYPERPLASIA
     Dosage: 5 MILLIGRAM
     Route: 048
     Dates: start: 20170118
  13. CANDESARTAN. [Concomitant]
     Active Substance: CANDESARTAN
     Dosage: 4 MILLIGRAM
     Route: 048
     Dates: start: 20170227
  14. LORAZEPAM. [Concomitant]
     Active Substance: LORAZEPAM
     Indication: MAJOR DEPRESSION
     Dosage: 0.5 MILLIGRAM
     Route: 048
     Dates: start: 20170207, end: 20170531
  15. TAMSULOSIN [Concomitant]
     Active Substance: TAMSULOSIN
     Indication: BENIGN PROSTATIC HYPERPLASIA
     Dosage: 0.2 MILLIGRAM
     Route: 048
     Dates: start: 20170104
  16. VORTIOXETINE. [Suspect]
     Active Substance: VORTIOXETINE
     Dosage: 15 MILLIGRAM, QD
     Route: 048
     Dates: start: 20170109, end: 20170206
  17. DOXEPINE [Concomitant]
     Active Substance: DOXEPIN
     Indication: MAJOR DEPRESSION
     Dosage: 6 MILLIGRAM
     Route: 048
     Dates: start: 20170105, end: 20170614
  18. LORAZEPAM. [Concomitant]
     Active Substance: LORAZEPAM
     Dosage: 1 MILLIGRAM
     Route: 048
     Dates: start: 20170601
  19. SPIRONOLACTONE. [Concomitant]
     Active Substance: SPIRONOLACTONE
     Indication: CONGESTIVE CARDIOMYOPATHY
     Dosage: 25 MILLIGRAM
     Route: 048
     Dates: start: 20150613, end: 20170108
  20. SOMETO [Concomitant]
     Indication: BENIGN PROSTATIC HYPERPLASIA
     Route: 048
     Dates: start: 20170118
  21. LITHIUM. [Concomitant]
     Active Substance: LITHIUM
     Indication: MAJOR DEPRESSION
     Dosage: 300 MILLIGRAM
     Route: 048
     Dates: start: 20160530
  22. RIVAROXABAN [Concomitant]
     Active Substance: RIVAROXABAN
     Indication: CONGESTIVE CARDIOMYOPATHY
     Dosage: 20 MILLIGRAM
     Route: 048
     Dates: start: 20150811

REACTIONS (4)
  - Congestive cardiomyopathy [Recovered/Resolved]
  - Congestive cardiomyopathy [Recovered/Resolved]
  - Limb injury [Recovered/Resolved]
  - Atrial fibrillation [Unknown]

NARRATIVE: CASE EVENT DATE: 20170227
